FAERS Safety Report 6371486-0 (Version None)
Quarter: 2009Q3

REPORT INFORMATION
  Report Type: 
  Country: None (occurrence: None)
  Receive Date: 20090918
  Receipt Date: 20090902
  Transmission Date: 20100115
  Serious: Yes (Hospitalization)
  Sender: FDA-Public Use
  Company Number: 8051783

PATIENT
  Age: 68 Year
  Sex: Female
  Weight: 78 kg

DRUGS (8)
  1. PREDNISOLONE [Suspect]
     Indication: CHRONIC OBSTRUCTIVE PULMONARY DISEASE
     Dosage: PO
     Route: 048
     Dates: start: 20090320, end: 20090401
  2. ASPIRIN [Concomitant]
  3. FUROSEMIDE [Concomitant]
  4. PHYLLOCONTIN [Concomitant]
  5. ALBUTEROL [Concomitant]
  6. SERETIDE /01420901/ [Concomitant]
  7. SIMVASTATIN [Concomitant]
  8. TIOTROPIUM BROMIDE [Concomitant]

REACTIONS (2)
  - HALLUCINATION [None]
  - PSYCHOTIC DISORDER [None]
